FAERS Safety Report 10261505 (Version 2)
Quarter: 2014Q2

REPORT INFORMATION
  Report Type: Spontaneous
  Country: US (occurrence: US)
  Receive Date: 20140626
  Receipt Date: 20140626
  Transmission Date: 20141212
  Serious: No
  Sender: FDA-Public Use
  Company Number: US-MYLANLABS-2013S1010286

PATIENT
  Age: 79 Year
  Sex: Female
  Weight: 58.97 kg

DRUGS (14)
  1. PERFOROMIST (FORMOTEROL FUMARATE) INHALATION SOLUTION [Suspect]
     Indication: CHRONIC OBSTRUCTIVE PULMONARY DISEASE
     Route: 055
     Dates: start: 201303
  2. IPRATROPIUM [Concomitant]
     Indication: CHRONIC OBSTRUCTIVE PULMONARY DISEASE
     Route: 055
  3. VENLAFAXINE [Concomitant]
     Route: 048
  4. PANTOPRAZOLE [Concomitant]
     Route: 048
  5. DILTIAZEM [Concomitant]
     Route: 048
  6. FUROSEMIDE [Concomitant]
     Route: 048
  7. POTASSIUM CHLORIDE [Concomitant]
     Route: 048
  8. ISOSORBIDE [Concomitant]
     Route: 048
  9. FLECAINIDE [Concomitant]
     Route: 048
  10. DIGOXIN [Concomitant]
     Route: 048
  11. LOVASTATIN [Concomitant]
     Route: 048
  12. PREDNISONE [Concomitant]
     Route: 048
  13. LORAZEPAM [Concomitant]
     Route: 048
  14. DIPHENHYDRAMINE [Concomitant]
     Route: 048

REACTIONS (1)
  - Dyspnoea [Not Recovered/Not Resolved]
